FAERS Safety Report 8282217-1 (Version None)
Quarter: 2012Q2

REPORT INFORMATION
  Report Type: 
  Country: None (occurrence: None)
  Receive Date: 20120410
  Receipt Date: 20120328
  Transmission Date: 20120825
  Serious: Yes (Other)
  Sender: FDA-Public Use
  Company Number: 2012-030626

PATIENT
  Age: 66 Year
  Sex: Female

DRUGS (3)
  1. FLEXERIL [Concomitant]
  2. INTERFERON BETA-1B [Suspect]
     Indication: MULTIPLE SCLEROSIS
     Dosage: 8 MIU, QOD, SUBCUTANEOUS
     Route: 058
     Dates: start: 20111024
  3. ASPIRIN [Suspect]
     Indication: CHILLS
     Dosage: 2 DF
     Dates: start: 20120326

REACTIONS (7)
  - ACTIVITIES OF DAILY LIVING IMPAIRED [None]
  - MOVEMENT DISORDER [None]
  - CHILLS [None]
  - ASTHENIA [None]
  - MOBILITY DECREASED [None]
  - HYPOAESTHESIA [None]
  - MUSCULAR WEAKNESS [None]
